FAERS Safety Report 6597992-1 (Version None)
Quarter: 2010Q1

REPORT INFORMATION
  Report Type: 
  Country: None (occurrence: None)
  Receive Date: 20100223
  Receipt Date: 20091221
  Transmission Date: 20100710
  Serious: No
  Sender: FDA-Public Use
  Company Number: US-ALLERGAN-0917520US

PATIENT
  Sex: Female

DRUGS (6)
  1. BOTOX COSMETIC [Suspect]
     Indication: SKIN WRINKLING
     Dosage: 45 UNITS, SINGLE
     Route: 030
     Dates: start: 20091127, end: 20091127
  2. BOTOX COSMETIC [Suspect]
     Dosage: 45 UNK, SINGLE
     Route: 030
     Dates: start: 20090811, end: 20090811
  3. BOTOX COSMETIC [Suspect]
     Dosage: 45 UNK, SINGLE
     Route: 030
     Dates: start: 20090416, end: 20090416
  4. FLEXERIL [Concomitant]
  5. FIORICET [Concomitant]
  6. IBUPROFEN [Concomitant]
     Dosage: 800 MG, QID

REACTIONS (1)
  - VISION BLURRED [None]
